FAERS Safety Report 8174512-1 (Version None)
Quarter: 2012Q1

REPORT INFORMATION
  Report Type: 
  Country: None (occurrence: None)
  Receive Date: 20120229
  Receipt Date: 20120223
  Transmission Date: 20120608
  Serious: Yes (Other)
  Sender: FDA-Public Use
  Company Number: US-BAYER-200937707NA

PATIENT
  Age: 43 Year
  Sex: Male
  Weight: 90 kg

DRUGS (27)
  1. ZOSYN [Concomitant]
     Dosage: 3.375 G, UNK
     Route: 042
     Dates: start: 20060518
  2. PROTONIX [Concomitant]
     Dosage: 40 MG, UNK, LONG TERM
     Route: 048
  3. MORPHINE SULFATE [Concomitant]
     Dosage: 2 MG, UNK
     Route: 042
     Dates: start: 20060515
  4. HEPARIN [Concomitant]
     Dosage: 28000 U, UNK
     Route: 042
     Dates: start: 20060522, end: 20060522
  5. ATIVAN [Concomitant]
     Dosage: 1 MG, UNK
     Route: 048
  6. VERSED [Concomitant]
     Dosage: 4 MG, UNK
     Route: 042
     Dates: start: 20060522, end: 20060522
  7. ALBUMIN (HUMAN) [Concomitant]
     Dosage: 575 G, VIA CARDIOPULMONARY BYPASS
     Dates: start: 20060522, end: 20060522
  8. TRASYLOL [Suspect]
     Indication: AORTIC ANEURYSM REPAIR
     Dosage: 200 ML, UNK LOADING DOSE
     Route: 042
     Dates: start: 20060522, end: 20060522
  9. POTASSIUM CHLORIDE [Concomitant]
     Dosage: 40 MEQ, UNK
     Route: 048
  10. FENTANYL [Concomitant]
     Dosage: 1000MCG
     Route: 042
     Dates: start: 20060522, end: 20060522
  11. HEPARIN [Concomitant]
     Dosage: 24,000 UNITS ,CARDIOPULMONARY BYPASS
     Dates: start: 20060522, end: 20060522
  12. TRASYLOL [Suspect]
     Indication: AORTIC ANEURYSM
     Dosage: 50ML/HR INFUSION
     Route: 042
     Dates: start: 20060522, end: 20060522
  13. OMNIPAQUE 140 [Concomitant]
     Dosage: UNK
     Dates: start: 20060516
  14. FRESH FROZEN PLASMA [Concomitant]
     Dosage: 1 U, UNK
     Route: 042
     Dates: start: 20060522
  15. VANCOMYCIN [Concomitant]
     Dosage: 1 G CONTINUED THROUGH OPERATIVE AND POST OPERATIVE PHASE
     Route: 042
     Dates: start: 20060518
  16. ESMOLOL HCL [Concomitant]
     Dosage: UNK
     Route: 042
     Dates: start: 20060518
  17. NOREPINEPHRINE BITARTRATE [Concomitant]
     Dosage: TITRATED
     Route: 042
     Dates: start: 20060522, end: 20060522
  18. WHOLE BLOOD [Concomitant]
     Dosage: 3 U, UNK
     Route: 042
     Dates: start: 20060522
  19. CEFAZOLIN [Concomitant]
     Dosage: 1 G, UNK
     Route: 042
     Dates: start: 20060518
  20. METOPROLOL SUCCINATE [Concomitant]
     Dosage: 25 MG, UNK
     Route: 048
     Dates: start: 20060518
  21. TOPROL-XL [Concomitant]
     Dosage: 50 MG, UNK LONG TERM
     Route: 048
  22. MANNITOL [Concomitant]
     Dosage: 12.5 G, VIA CARDIOPULMONARY BYPASS
     Dates: start: 20060522, end: 20060522
  23. TRASYLOL [Suspect]
     Dosage: 200 ML PUMP PRIME
     Dates: start: 20060522
  24. BENICAR [Concomitant]
     Dosage: 40 MG, UNK LONG TERM
     Route: 048
  25. MORPHINE SULFATE [Concomitant]
     Dosage: 10 MG, UNK
     Route: 042
     Dates: start: 20060522, end: 20060522
  26. PROPOFOL [Concomitant]
     Dosage: MULTIPLE BOLUS GIVEN
     Route: 042
     Dates: start: 20060522, end: 20060522
  27. PLATELETS [Concomitant]
     Dosage: 5 U, UNK
     Route: 042
     Dates: start: 20060522

REACTIONS (5)
  - RENAL FAILURE [None]
  - PAIN [None]
  - PSYCHOLOGICAL TRAUMA [None]
  - INJURY [None]
  - UNEVALUABLE EVENT [None]
